FAERS Safety Report 24391114 (Version 1)
Quarter: 2024Q4

REPORT INFORMATION
  Report Type: Spontaneous
  Country: US (occurrence: US)
  Receive Date: 20241003
  Receipt Date: 20241003
  Transmission Date: 20250115
  Serious: Yes (Other)
  Sender: NOVARTIS
  Company Number: US-002147023-NVSC2024US194556

PATIENT
  Age: 74 Year
  Sex: Female
  Weight: 53.07 kg

DRUGS (3)
  1. LEQVIO [Suspect]
     Active Substance: INCLISIRAN SODIUM
     Indication: Low density lipoprotein
     Dosage: UNK (FIRST INJECTION)
     Route: 065
     Dates: start: 20230524
  2. LEQVIO [Suspect]
     Active Substance: INCLISIRAN SODIUM
     Dosage: UNK (SECOND INJECTION)
     Route: 065
     Dates: start: 20230906
  3. LEQVIO [Suspect]
     Active Substance: INCLISIRAN SODIUM
     Dosage: 284 MG
     Route: 062
     Dates: start: 20240410, end: 20240731

REACTIONS (1)
  - Oral herpes [Unknown]

NARRATIVE: CASE EVENT DATE: 20240410
